FAERS Safety Report 7652153-X (Version None)
Quarter: 2011Q3

REPORT INFORMATION
  Report Type: 
  Country: None (occurrence: None)
  Receive Date: 20110803
  Receipt Date: 20110721
  Transmission Date: 20111222
  Serious: Yes (Other)
  Sender: FDA-Public Use
  Company Number: US-BAYER-2010-007908

PATIENT
  Age: 32 Year
  Sex: Female
  Weight: 81.633 kg

DRUGS (3)
  1. YAZ [Suspect]
     Indication: PRODUCT USED FOR UNKNOWN INDICATION
     Dosage: UNK
     Dates: start: 20070101, end: 20090101
  2. YASMIN [Suspect]
     Dosage: UNK
     Dates: start: 20070101, end: 20090101
  3. SENOKOT [Concomitant]
     Indication: ABDOMINAL PAIN UPPER
     Dosage: UNK
     Dates: start: 20060201

REACTIONS (4)
  - CHOLELITHIASIS [None]
  - HAEMANGIOMA OF LIVER [None]
  - DYSPEPSIA [None]
  - PAIN [None]
